FAERS Safety Report 11369694 (Version 1)
Quarter: 2015Q3

REPORT INFORMATION
  Report Type: Spontaneous
  Country: US (occurrence: US)
  Receive Date: 20150812
  Receipt Date: 20150812
  Transmission Date: 20151125
  Serious: Yes (Other)
  Sender: FDA-Public Use
  Company Number: US-GLAXOSMITHKLINE-US2015GSK091156

PATIENT
  Sex: Female

DRUGS (1)
  1. OMEGA-3-ACID ETHYL ESTERS. [Suspect]
     Active Substance: OMEGA-3-ACID ETHYL ESTERS
     Indication: BLOOD CHOLESTEROL INCREASED
     Dosage: UNK, U
     Route: 065
     Dates: start: 20150101

REACTIONS (5)
  - Adverse event [Unknown]
  - Neurotoxicity [Unknown]
  - Muscle spasms [Unknown]
  - Nervous system disorder [Unknown]
  - Muscle twitching [Unknown]
